FAERS Safety Report 10646722 (Version 2)
Quarter: 2015Q1

REPORT INFORMATION
  Report Type: Spontaneous
  Country: US (occurrence: US)
  Receive Date: 20141211
  Receipt Date: 20150123
  Transmission Date: 20150720
  Serious: No
  Sender: FDA-Public Use
  Company Number: US-PFIZER INC-2014331016

PATIENT
  Age: 71 Year
  Sex: Female
  Weight: 77 kg

DRUGS (3)
  1. ADVIL [Suspect]
     Active Substance: IBUPROFEN
     Indication: HEADACHE
  2. ADVIL [Suspect]
     Active Substance: IBUPROFEN
     Indication: ARTHRITIS
     Dosage: 200MG, TWICE DAILY; MOST DAYS THREE TIMES DAILY
  3. ALEVE [Suspect]
     Active Substance: NAPROXEN SODIUM
     Indication: MIGRAINE
     Dosage: 220 MG, TWICE A DAY
     Dates: start: 1994

REACTIONS (5)
  - Drug ineffective [Unknown]
  - Joint lock [Unknown]
  - Hypotension [Unknown]
  - Arthropathy [Unknown]
  - Mobility decreased [Unknown]
